FAERS Safety Report 9688173 (Version 1)
Quarter: 2013Q4

REPORT INFORMATION
  Report Type: Spontaneous
  Country: US (occurrence: US)
  Receive Date: 20131114
  Receipt Date: 20131114
  Transmission Date: 20140711
  Serious: No
  Sender: FDA-Public Use
  Company Number: US-009507513-1311USA005218

PATIENT
  Sex: Male

DRUGS (1)
  1. AFRIN PUMP SPRAY [Suspect]
     Indication: EAR DISCOMFORT
     Dosage: UNK, UNKNOWN
     Route: 045

REACTIONS (4)
  - Rhinorrhoea [Unknown]
  - Sneezing [Unknown]
  - Therapeutic response unexpected [Unknown]
  - Off label use [Unknown]
